FAERS Safety Report 6875023-3 (Version None)
Quarter: 2010Q3

REPORT INFORMATION
  Report Type: 
  Country: None (occurrence: None)
  Receive Date: 20100727
  Receipt Date: 20100722
  Transmission Date: 20110219
  Serious: Yes (Death, Hospitalization, Other)
  Sender: FDA-Public Use
  Company Number: IN-AMGEN-UK248693

PATIENT
  Sex: Female

DRUGS (14)
  1. DENOSUMAB [Suspect]
     Indication: METASTASES TO BONE
     Route: 058
     Dates: start: 20070723, end: 20070917
  2. ZOMETA [Suspect]
     Route: 042
     Dates: start: 20070723, end: 20071012
  3. TAMOXIFEN [Concomitant]
     Dates: start: 20070723
  4. CALCIUM [Concomitant]
     Dates: start: 20070723
  5. VITAMIN D3 [Concomitant]
     Dates: start: 20070723
  6. IBUPROFEN TABLETS [Concomitant]
     Dates: start: 20070723, end: 20071011
  7. PARACETAMOL [Concomitant]
     Dates: start: 20070723, end: 20071011
  8. ONDANSETRON [Concomitant]
     Dates: start: 20070821, end: 20071010
  9. TRAMADOL HYDROCHLORIDE [Concomitant]
     Dates: start: 20070917, end: 20070920
  10. LORAZEPAM [Concomitant]
     Dates: start: 20070917, end: 20071010
  11. PARAFFIN, LIQUID [Concomitant]
     Dates: start: 20070917
  12. MILK OF MAGNESIA TAB [Concomitant]
     Dates: start: 20070917
  13. VITAMIN B COMPLEX CAP [Concomitant]
     Dates: start: 20070917, end: 20070927
  14. KETOROLAC [Concomitant]
     Dates: start: 20071008, end: 20071010

REACTIONS (9)
  - ABDOMINAL PAIN [None]
  - DECREASED APPETITE [None]
  - HYPERTENSION [None]
  - INSOMNIA [None]
  - KERATITIS [None]
  - MALIGNANT NEOPLASM PROGRESSION [None]
  - MENINGITIS [None]
  - VIITH NERVE PARALYSIS [None]
  - VOMITING [None]
